FAERS Safety Report 7630350-7 (Version None)
Quarter: 2011Q3

REPORT INFORMATION
  Report Type: 
  Country: None (occurrence: None)
  Receive Date: 20110722
  Receipt Date: 20110718
  Transmission Date: 20111222
  Serious: No
  Sender: FDA-Public Use
  Company Number: US-BAYER-2011-063049

PATIENT
  Age: 21 Year
  Sex: Female

DRUGS (2)
  1. MIRENA [Suspect]
     Dosage: 20 MCG/24HR, CONT
     Route: 015
     Dates: start: 20090914, end: 20100701
  2. MIRENA [Suspect]
     Dosage: 20 MCG/24HR, CONT
     Route: 015
     Dates: start: 20100701

REACTIONS (5)
  - DEVICE EXPULSION [None]
  - BREAST ENLARGEMENT [None]
  - AMENORRHOEA [None]
  - FATIGUE [None]
  - ABDOMINAL DISCOMFORT [None]
